FAERS Safety Report 9923372 (Version 1)
Quarter: 2014Q1

REPORT INFORMATION
  Report Type: Spontaneous
  Country: US (occurrence: US)
  Receive Date: 20140225
  Receipt Date: 20140225
  Transmission Date: 20141002
  Serious: No
  Sender: FDA-Public Use
  Company Number: US-AMGEN-USASP2013076769

PATIENT
  Age: 45 Year
  Sex: Female
  Weight: 72.11 kg

DRUGS (13)
  1. ENBREL [Suspect]
     Indication: PRODUCT USED FOR UNKNOWN INDICATION
     Dosage: 50 MG, QWK
     Route: 058
  2. NORVASC [Concomitant]
     Dosage: 10 MG, UNK
  3. PREDNISONE [Concomitant]
     Dosage: 5 MG, UNK
  4. LEFLUNOMIDE [Concomitant]
     Dosage: 10 MG, UNK
  5. METFORMIN [Concomitant]
     Dosage: 1000 MG, UNK
  6. NIACIN [Concomitant]
     Dosage: 125 MG, UNK
  7. IRON [Concomitant]
     Dosage: UNK
  8. VITAMIN B12                        /00056201/ [Concomitant]
     Dosage: 100 MUG, UNK
  9. FISH OIL [Concomitant]
     Dosage: UNK
  10. MULTI-VIT [Concomitant]
     Dosage: UNK
  11. REQUIP [Concomitant]
     Dosage: 1 MG, UNK
  12. FLEXERIL                           /00428402/ [Concomitant]
     Dosage: 10 MG, UNK
  13. CALCIUM [Concomitant]
     Dosage: 500 UNK, UNK

REACTIONS (3)
  - Nasal dryness [Unknown]
  - Injection site pruritus [Unknown]
  - Injection site erythema [Unknown]
